FAERS Safety Report 12707962 (Version 1)
Quarter: 2016Q3

REPORT INFORMATION
  Report Type: Spontaneous
  Country: IT (occurrence: IT)
  Receive Date: 20160901
  Receipt Date: 20160901
  Transmission Date: 20161109
  Serious: Yes (Hospitalization)
  Sender: FDA-Public Use
  Company Number: IT-PFIZER INC-2016408641

PATIENT
  Age: 42 Year
  Sex: Female

DRUGS (4)
  1. RIVOTRIL [Suspect]
     Active Substance: CLONAZEPAM
     Dosage: 28 DF, SINGLE
     Route: 048
     Dates: start: 20160530, end: 20160530
  2. VALDORM /00246102/ [Suspect]
     Active Substance: VALERIAN
     Dosage: 8 DF, SINGLE
     Route: 048
     Dates: start: 20160530, end: 20160530
  3. TAVOR (LORAZEPAM) [Suspect]
     Active Substance: LORAZEPAM
     Dosage: 28 DF, SINGLE
     Route: 048
     Dates: start: 20160530, end: 20160530
  4. EN [Suspect]
     Active Substance: DELORAZEPAM
     Dosage: 10 ML, SINGLE
     Route: 048
     Dates: start: 20160530, end: 20160530

REACTIONS (5)
  - Intentional overdose [Recovering/Resolving]
  - Suicide attempt [Recovered/Resolved]
  - Sopor [Recovered/Resolved]
  - Benzodiazepine drug level [Recovered/Resolved]
  - Drug abuse [Recovered/Resolved]

NARRATIVE: CASE EVENT DATE: 20160530
